FAERS Safety Report 4814264-3 (Version None)
Quarter: 2005Q4

REPORT INFORMATION
  Report Type: 
  Country: None (occurrence: None)
  Receive Date: 20051028
  Receipt Date: 20050726
  Transmission Date: 20060501
  Serious: No
  Sender: FDA-Public Use
  Company Number: US-GLAXOSMITHKLINE-A0567956A

PATIENT
  Age: 85 Year
  Sex: Female

DRUGS (3)
  1. ADVAIR DISKUS 100/50 [Suspect]
     Indication: ASTHMA
     Route: 055
     Dates: start: 20020101
  2. SINGULAIR [Concomitant]
  3. LEVOXYL [Concomitant]

REACTIONS (3)
  - ARTHRALGIA [None]
  - GINGIVAL PAIN [None]
  - MYALGIA [None]
